FAERS Safety Report 7094800-X (Version None)
Quarter: 2010Q4

REPORT INFORMATION
  Report Type: 
  Country: None (occurrence: None)
  Receive Date: 20101110
  Receipt Date: 20101029
  Transmission Date: 20110411
  Serious: Yes (Hospitalization)
  Sender: FDA-Public Use
  Company Number: JP-AMGEN-JPNSP2010002893

PATIENT

DRUGS (3)
  1. ENBREL [Suspect]
     Indication: RHEUMATOID ARTHRITIS
     Route: 058
     Dates: start: 20100924
  2. ENBREL [Suspect]
     Route: 058
     Dates: start: 20101020
  3. BAKTAR [Suspect]
     Dosage: UNKNOWN
     Route: 048

REACTIONS (7)
  - AGRANULOCYTOSIS [None]
  - PURPURA [None]
  - PYREXIA [None]
  - RENAL FAILURE [None]
  - SEPSIS [None]
  - SHOCK [None]
  - VASCULITIS [None]
